FAERS Safety Report 9827497 (Version 1)
Quarter: 2014Q1

REPORT INFORMATION
  Report Type: Spontaneous
  Country: US (occurrence: US)
  Receive Date: 20140117
  Receipt Date: 20140117
  Transmission Date: 20141002
  Serious: Yes (Hospitalization, Other)
  Sender: FDA-Public Use
  Company Number: US-BAYER-2014-006178

PATIENT
  Age: 31 Year
  Sex: Female
  Weight: 84.81 kg

DRUGS (3)
  1. YAZ [Suspect]
  2. ASA [Concomitant]
  3. PREVACID [Concomitant]

REACTIONS (3)
  - Cholecystectomy [None]
  - Cerebrovascular accident [None]
  - Cholecystectomy [None]
